FAERS Safety Report 8992212 (Version 2)
Quarter: 2013Q1

REPORT INFORMATION
  Report Type: Spontaneous
  Country: US (occurrence: US)
  Receive Date: 20121231
  Receipt Date: 20130213
  Transmission Date: 20140127
  Serious: No
  Sender: FDA-Public Use
  Company Number: US-B.I. PHARMACEUTICALS,INC./RIDGEFIELD-2012-BI-03503BP

PATIENT
  Age: 76 None
  Sex: Female

DRUGS (7)
  1. PRADAXA [Suspect]
     Indication: ATRIAL FIBRILLATION
     Dosage: 300 MG
     Route: 048
     Dates: start: 201204
  2. PRADAXA [Suspect]
     Indication: CEREBROVASCULAR ACCIDENT PROPHYLAXIS
  3. PRADAXA [Suspect]
     Indication: ATRIAL FIBRILLATION
  4. METOPROLOL [Concomitant]
     Indication: HYPERTENSION
     Route: 048
  5. DIGOXIN [Concomitant]
     Indication: HYPERTENSION
     Route: 048
  6. DYAZIDE [Concomitant]
     Indication: HYPERTENSION
     Route: 048
  7. TRIAMTERENE [Concomitant]
     Indication: HYPERTENSION
     Route: 048

REACTIONS (4)
  - Asthenia [Not Recovered/Not Resolved]
  - Dizziness [Not Recovered/Not Resolved]
  - Oesophageal pain [Not Recovered/Not Resolved]
  - Laceration [Not Recovered/Not Resolved]
